FAERS Safety Report 4921559-1 (Version None)
Quarter: 2006Q1

REPORT INFORMATION
  Report Type: 
  Country: None (occurrence: None)
  Receive Date: 20060223
  Receipt Date: 20060223
  Transmission Date: 20060701
  Serious: Yes (Hospitalization)
  Sender: FDA-Public Use
  Company Number: None

PATIENT
  Sex: Male

DRUGS (3)
  1. RISPERDAL CONSTA [Suspect]
     Indication: SCHIZOPHRENIA
     Dosage: 50 MG  Q 2 WEEKS  IM
     Route: 030
  2. DEPAKOTE [Concomitant]
  3. BUPROPION HCL [Concomitant]

REACTIONS (1)
  - DIABETES MELLITUS [None]
